FAERS Safety Report 25031007 (Version 1)
Quarter: 2025Q1

REPORT INFORMATION
  Report Type: Spontaneous
  Country: US (occurrence: US)
  Receive Date: 20250303
  Receipt Date: 20250303
  Transmission Date: 20250409
  Serious: Yes (Hospitalization)
  Sender: ABBVIE
  Company Number: US-ABBVIE-6151609

PATIENT
  Age: 43 Year
  Sex: Female

DRUGS (6)
  1. ARMOUR THYROID [Suspect]
     Active Substance: THYROID, PORCINE
     Indication: Product used for unknown indication
     Route: 048
     Dates: start: 2023
  2. GENOTROPIN [Concomitant]
     Active Substance: SOMATROPIN
     Indication: Hypopituitarism
     Dosage: GENOTROPIN PEN 5?PEN NEEDLE GAUGE 29?(DOSE IN INCREMENTS OF 0.1 MG)
     Route: 058
     Dates: start: 20250113
  3. GENOTROPIN [Concomitant]
     Active Substance: SOMATROPIN
     Indication: Hypopituitarism
     Route: 065
  4. GENOTROPIN [Concomitant]
     Active Substance: SOMATROPIN
     Indication: Product used for unknown indication
  5. HYDROCORTISONE [Concomitant]
     Active Substance: HYDROCORTISONE
     Indication: Product used for unknown indication
     Route: 048
  6. MINOXIDIL [Concomitant]
     Active Substance: MINOXIDIL
     Indication: Product used for unknown indication
     Route: 048

REACTIONS (9)
  - Migraine [Unknown]
  - Hypopituitarism [Unknown]
  - Hypothyroidism [Unknown]
  - Dehydration [Unknown]
  - Fatigue [Unknown]
  - Vitamin D deficiency [Unknown]
  - Hypogonadism [Unknown]
  - Growth hormone deficiency [Unknown]
  - Adrenal insufficiency [Unknown]

NARRATIVE: CASE EVENT DATE: 20240101
